FAERS Safety Report 6711589-1 (Version None)
Quarter: 2010Q2

REPORT INFORMATION
  Report Type: 
  Country: None (occurrence: None)
  Receive Date: 20100505
  Receipt Date: 20100427
  Transmission Date: 20101027
  Serious: Yes (Other)
  Sender: FDA-Public Use
  Company Number: PHHO2010ES06291

PATIENT
  Age: 63 Year
  Sex: Female

DRUGS (3)
  1. ZOMETA [Suspect]
     Indication: MULTIPLE MYELOMA
     Dosage: 4 MG, EVERY 28 DAYS
     Route: 042
     Dates: start: 20030101, end: 20060101
  2. AREDIA [Suspect]
     Dosage: 90 MG, UNK
     Route: 042
     Dates: start: 20090101
  3. BONEFOS [Suspect]
     Indication: MULTIPLE MYELOMA
     Dosage: 300 MG, UNK
     Route: 042
     Dates: start: 20060101

REACTIONS (1)
  - OSTEONECROSIS OF JAW [None]
